FAERS Safety Report 9603932 (Version 1)
Quarter: 2013Q4

REPORT INFORMATION
  Report Type: Spontaneous
  Country: US (occurrence: US)
  Receive Date: 20131008
  Receipt Date: 20131008
  Transmission Date: 20140711
  Serious: No
  Sender: FDA-Public Use
  Company Number: US-BIOGENIDEC-2013BI092048

PATIENT
  Age: 49 Year
  Sex: Female

DRUGS (2)
  1. AVONEX [Suspect]
     Indication: MULTIPLE SCLEROSIS
     Route: 030
     Dates: start: 20100501, end: 20110512
  2. AVONEX [Suspect]
     Indication: MULTIPLE SCLEROSIS
     Route: 030

REACTIONS (6)
  - Abdominal pain [Unknown]
  - Abdominal discomfort [Unknown]
  - Precancerous cells present [Not Recovered/Not Resolved]
  - Chills [Recovered/Resolved]
  - Pain [Recovered/Resolved]
  - Nausea [Unknown]
